FAERS Safety Report 4906282-1 (Version None)
Quarter: 2006Q1

REPORT INFORMATION
  Report Type: 
  Country: None (occurrence: None)
  Receive Date: 20060206
  Receipt Date: 20060127
  Transmission Date: 20060701
  Serious: Yes (Death, Life-Threatening)
  Sender: FDA-Public Use
  Company Number: 220184

PATIENT
  Age: 83 Year
  Sex: Female

DRUGS (2)
  1. ACTIVACIN (ALTEPLASE)PWDR + SOLVENT, INFUSION SOLN [Suspect]
     Indication: CEREBRAL ARTERY THROMBOSIS
     Dosage: 34.8 MG, SINGLE, INTRAVENOUS
     Route: 042
     Dates: start: 20051127, end: 20051127
  2. ASPIRIN [Concomitant]

REACTIONS (5)
  - ANAEMIA [None]
  - AORTIC ANEURYSM RUPTURE [None]
  - BLOOD PRESSURE SYSTOLIC INCREASED [None]
  - SHOCK [None]
  - STRESS [None]
